FAERS Safety Report 5721798-6 (Version None)
Quarter: 2008Q2

REPORT INFORMATION
  Report Type: 
  Country: None (occurrence: None)
  Receive Date: 20080429
  Receipt Date: 20070724
  Transmission Date: 20081010
  Serious: No
  Sender: FDA-Public Use
  Company Number: US-ASTRAZENECA-2007UW07032

PATIENT
  Age: 71 Year
  Sex: Female
  Weight: 79.5 kg

DRUGS (5)
  1. NEXIUM [Suspect]
     Indication: DUODENAL ULCER
     Route: 048
  2. PLAVIX [Concomitant]
  3. ASPIRIN [Concomitant]
  4. LIPITOR [Concomitant]
  5. FAMOTIDINE [Concomitant]

REACTIONS (3)
  - DRY MOUTH [None]
  - ORAL PAIN [None]
  - SWOLLEN TONGUE [None]
